FAERS Safety Report 5637630-5 (Version None)
Quarter: 2008Q1

REPORT INFORMATION
  Report Type: 
  Country: None (occurrence: None)
  Receive Date: 20080225
  Receipt Date: 20080218
  Transmission Date: 20080703
  Serious: Yes (Disabling)
  Sender: FDA-Public Use
  Company Number: FR-ABBOTT-08P-056-0439014-00

PATIENT
  Sex: Male

DRUGS (10)
  1. NAXY [Suspect]
     Indication: EAR INFECTION
     Route: 048
  2. NAXY [Suspect]
     Indication: RHINITIS
  3. NAXY [Suspect]
     Indication: PHARYNGITIS
  4. ATORVASTATIN CALCIUM [Concomitant]
     Indication: DRUG USE FOR UNKNOWN INDICATION
  5. TAMSULOSIN HCL [Concomitant]
     Indication: DRUG USE FOR UNKNOWN INDICATION
  6. ALFUZOSIN HCL [Concomitant]
     Indication: DRUG USE FOR UNKNOWN INDICATION
  7. ZOPICLONE [Concomitant]
     Indication: DRUG USE FOR UNKNOWN INDICATION
  8. DESLORATADINE [Concomitant]
     Indication: PRURITUS GENERALISED
  9. HYDROXYZINE [Concomitant]
     Indication: PRURITUS GENERALISED
  10. ZINC GLUCONATE [Concomitant]
     Indication: ZINC DEFICIENCY

REACTIONS (1)
  - ERYTHROMELALGIA [None]
